FAERS Safety Report 7652500-9 (Version None)
Quarter: 2011Q3

REPORT INFORMATION
  Report Type: 
  Country: None (occurrence: None)
  Receive Date: 20110803
  Receipt Date: 20110722
  Transmission Date: 20111222
  Serious: Yes (Hospitalization, Other)
  Sender: FDA-Public Use
  Company Number: JP-BAYER-2011-057908

PATIENT
  Age: 82 Year
  Sex: Male
  Weight: 58 kg

DRUGS (9)
  1. OLMESARTAN MEDOXOMIL [Concomitant]
     Indication: HYPERTENSION
     Dosage: DAILY DOSE 20 MG
     Route: 048
  2. GLAKAY [Concomitant]
     Indication: OSTEOPOROSIS
     Dosage: DAILY DOSE 15 MG
     Route: 048
     Dates: start: 20110331
  3. NEXAVAR [Suspect]
     Indication: HEPATIC NEOPLASM MALIGNANT
     Dosage: DAILY DOSE 400 MG
     Route: 048
     Dates: start: 20110628, end: 20110628
  4. LEVOTHYROXINE SODIUM [Concomitant]
     Indication: HYPOTHYROIDISM
     Dosage: DAILY DOSE 100 ?G
     Route: 048
     Dates: start: 20090901
  5. ZOLPIDEM [Concomitant]
     Indication: INSOMNIA
     Dosage: DAILY DOSE 5 MG
     Route: 048
  6. GLYBURIDE [Concomitant]
     Indication: DIABETES MELLITUS
     Dosage: DAILY DOSE 1.25 MG
     Route: 048
  7. ATELEC [Concomitant]
     Indication: HYPERTENSION
     Dosage: DAILY DOSE 20 MG
     Route: 048
  8. ASPIRIN [Concomitant]
     Indication: CEREBROVASCULAR ACCIDENT PROPHYLAXIS
     Dosage: DAILY DOSE 100 MG
     Route: 048
  9. UNKNOWN DRUG [Suspect]

REACTIONS (6)
  - HEMIPARESIS [None]
  - DYSARTHRIA [None]
  - LACUNAR INFARCTION [None]
  - DYSLALIA [None]
  - DYSPHAGIA [None]
  - CEREBRAL INFARCTION [None]
